FAERS Safety Report 25543376 (Version 1)
Quarter: 2025Q3

REPORT INFORMATION
  Report Type: Report from Study
  Country: US (occurrence: US)
  Receive Date: 20250711
  Receipt Date: 20250711
  Transmission Date: 20251021
  Serious: Yes (Hospitalization, Other)
  Sender: BOEHRINGER INGELHEIM
  Company Number: US-BoehringerIngelheim-2025-BI-025903

PATIENT
  Age: 71 Year
  Sex: Female

DRUGS (3)
  1. OFEV [Suspect]
     Active Substance: NINTEDANIB
     Indication: Idiopathic pulmonary fibrosis
  2. OFEV [Suspect]
     Active Substance: NINTEDANIB
     Dates: start: 20250428
  3. OFEV [Suspect]
     Active Substance: NINTEDANIB

REACTIONS (9)
  - Hypoaesthesia [Recovered/Resolved]
  - Right-to-left cardiac shunt [Unknown]
  - Oxygen saturation decreased [Unknown]
  - Gastrointestinal sounds abnormal [Unknown]
  - Diarrhoea [Recovered/Resolved]
  - Drug hypersensitivity [Unknown]
  - Dizziness [Recovered/Resolved]
  - Headache [Unknown]
  - Fatigue [Unknown]

NARRATIVE: CASE EVENT DATE: 20250503
